FAERS Safety Report 6552946-6 (Version None)
Quarter: 2010Q1

REPORT INFORMATION
  Report Type: 
  Country: None (occurrence: None)
  Receive Date: 20100122
  Receipt Date: 20100108
  Transmission Date: 20100710
  Serious: Yes (Other)
  Sender: FDA-Public Use
  Company Number: 2009002909

PATIENT
  Age: 68 Year
  Sex: Male

DRUGS (3)
  1. TARCEVA [Suspect]
     Indication: LUNG NEOPLASM MALIGNANT
     Dosage: (150 MG,QD),ORAL
     Route: 048
     Dates: start: 20090630, end: 20091126
  2. OXYCONTIN [Concomitant]
  3. OXYCODONE HCL [Concomitant]

REACTIONS (3)
  - CONJUNCTIVAL ULCER [None]
  - CONJUNCTIVITIS [None]
  - SKIN EXFOLIATION [None]
